FAERS Safety Report 9142974 (Version 1)
Quarter: 2013Q1

REPORT INFORMATION
  Report Type: Spontaneous
  Country: US (occurrence: US)
  Receive Date: 20130306
  Receipt Date: 20130306
  Transmission Date: 20140127
  Serious: Yes (Other)
  Sender: FDA-Public Use
  Company Number: US-PFIZER INC-2013076768

PATIENT
  Sex: Female

DRUGS (4)
  1. EFFEXOR XR [Suspect]
     Indication: DEPRESSION
     Dosage: 150 MG, 1X/DAY
     Route: 048
     Dates: start: 201212, end: 201301
  2. EFFEXOR XR [Suspect]
     Indication: ANXIETY
  3. PEPCID [Concomitant]
     Indication: GASTRIC DISORDER
     Dosage: UNK
  4. TRAMADOL [Concomitant]
     Indication: PAIN
     Dosage: UNK

REACTIONS (1)
  - Panic reaction [Unknown]
